FAERS Safety Report 16763923 (Version 1)
Quarter: 2019Q3

REPORT INFORMATION
  Report Type: Spontaneous
  Country: US (occurrence: US)
  Receive Date: 20190712
  Receipt Date: 20190712
  Transmission Date: 20191005
  Serious: No
  Sender: FDA-Public Use
  Company Number: None

PATIENT
  Age: 52 Year
  Sex: Female

DRUGS (2)
  1. ZARXIO [Suspect]
     Active Substance: FILGRASTIM-SNDZ
     Indication: NEUTROPENIA
     Route: 058
     Dates: start: 201907
  2. ZARXIO [Suspect]
     Active Substance: FILGRASTIM-SNDZ
     Indication: BREAST CANCER
     Route: 058
     Dates: start: 201907

REACTIONS (3)
  - Bone pain [None]
  - Pain in extremity [None]
  - Back pain [None]

NARRATIVE: CASE EVENT DATE: 20190712
